FAERS Safety Report 18754375 (Version 1)
Quarter: 2021Q1

REPORT INFORMATION
  Report Type: Spontaneous
  Country: FR (occurrence: FR)
  Receive Date: 20210119
  Receipt Date: 20210119
  Transmission Date: 20210419
  Serious: Yes (Hospitalization)
  Sender: FDA-Public Use
  Company Number: FR-TEVA-2021-FR-1869467

PATIENT
  Age: 49 Year
  Sex: Male
  Weight: 86 kg

DRUGS (3)
  1. VANCOMYCINE [Suspect]
     Active Substance: VANCOMYCIN
     Indication: INFECTION
     Dosage: OVER 2 HOURS:UNIT DOSE:1500MILLIGRAM
     Route: 042
     Dates: start: 20201221
  2. AMOXICILLINE [Suspect]
     Active Substance: AMOXICILLIN
     Indication: INFECTION
     Dosage: 9GRAM
     Route: 042
     Dates: start: 20201223, end: 20201224
  3. MEROPENEM ANHYDRE [Suspect]
     Active Substance: MEROPENEM
     Indication: INFECTION
     Dosage: 6GRAM
     Dates: start: 20201221, end: 20201223

REACTIONS (2)
  - Thrombocytopenia [Recovered/Resolved]
  - Neutropenia [Recovered/Resolved]

NARRATIVE: CASE EVENT DATE: 20201224
